FAERS Safety Report 13357917 (Version 2)
Quarter: 2017Q2

REPORT INFORMATION
  Report Type: Spontaneous
  Country: US (occurrence: US)
  Receive Date: 20170322
  Receipt Date: 20170424
  Transmission Date: 20170830
  Serious: No
  Sender: FDA-Public Use
  Company Number: US-PFIZER INC-2017120779

PATIENT
  Age: 6 Year
  Sex: Female

DRUGS (1)
  1. CHILDRENS ADVIL [Suspect]
     Active Substance: IBUPROFEN
     Dosage: 100 MG, UNK

REACTIONS (3)
  - Lip swelling [Unknown]
  - Swelling face [Unknown]
  - Hypersensitivity [Unknown]
